FAERS Safety Report 8190385-5 (Version None)
Quarter: 2012Q1

REPORT INFORMATION
  Report Type: 
  Country: None (occurrence: None)
  Receive Date: 20120221
  Receipt Date: 20111222
  Transmission Date: 20120608
  Serious: No
  Sender: FDA-Public Use
  Company Number: 1000026570

PATIENT
  Age: 57 Year
  Sex: Female

DRUGS (10)
  1. XANAX [Concomitant]
  2. VIIBRYD [Suspect]
     Indication: ANXIETY
     Dosage: 10 MG(10 MG,1 IN 1 D),ORAL:20 MG(20 MG,1 IN 1 D),ORAL:20 MG IN AM, 20 MG IN PM (20 MG,2 IN 1 D),ORAL
     Route: 048
     Dates: start: 20110101, end: 20111101
  3. VIIBRYD [Suspect]
     Indication: DEPRESSION
     Dosage: 10 MG(10 MG,1 IN 1 D),ORAL:20 MG(20 MG,1 IN 1 D),ORAL:20 MG IN AM, 20 MG IN PM (20 MG,2 IN 1 D),ORAL
     Route: 048
     Dates: start: 20110101, end: 20111101
  4. VIIBRYD [Suspect]
     Indication: ANXIETY
     Dosage: 10 MG(10 MG,1 IN 1 D),ORAL:20 MG(20 MG,1 IN 1 D),ORAL:20 MG IN AM, 20 MG IN PM (20 MG,2 IN 1 D),ORAL
     Route: 048
     Dates: start: 20110901, end: 20110101
  5. VIIBRYD [Suspect]
     Indication: DEPRESSION
     Dosage: 10 MG(10 MG,1 IN 1 D),ORAL:20 MG(20 MG,1 IN 1 D),ORAL:20 MG IN AM, 20 MG IN PM (20 MG,2 IN 1 D),ORAL
     Route: 048
     Dates: start: 20110901, end: 20110101
  6. VIIBRYD [Suspect]
     Indication: ANXIETY
     Dosage: 10 MG(10 MG,1 IN 1 D),ORAL:20 MG(20 MG,1 IN 1 D),ORAL:20 MG IN AM, 20 MG IN PM (20 MG,2 IN 1 D),ORAL
     Route: 048
     Dates: start: 20111101
  7. VIIBRYD [Suspect]
     Indication: DEPRESSION
     Dosage: 10 MG(10 MG,1 IN 1 D),ORAL:20 MG(20 MG,1 IN 1 D),ORAL:20 MG IN AM, 20 MG IN PM (20 MG,2 IN 1 D),ORAL
     Route: 048
     Dates: start: 20111101
  8. MULTI-VITAMIN [Concomitant]
  9. CALCIUM [Concomitant]
  10. L-THEANINE [Concomitant]

REACTIONS (4)
  - DEPRESSION [None]
  - DRUG INEFFECTIVE [None]
  - IRRITABILITY [None]
  - ANXIETY [None]
